FAERS Safety Report 8037836-4 (Version None)
Quarter: 2012Q1

REPORT INFORMATION
  Report Type: 
  Country: None (occurrence: None)
  Receive Date: 20120111
  Receipt Date: 20120103
  Transmission Date: 20120608
  Serious: Yes (Other)
  Sender: FDA-Public Use
  Company Number: PHHY2011FR105853

PATIENT
  Age: 60 Year
  Sex: Female
  Weight: 63 kg

DRUGS (6)
  1. GLEEVEC [Suspect]
     Indication: CHRONIC MYELOID LEUKAEMIA
     Dosage: 400 MG DAILY
     Route: 048
     Dates: start: 20051205, end: 20100706
  2. LEVOTHYROXINE SODIUM [Concomitant]
  3. CELIPROLOL [Concomitant]
  4. EFFEXOR [Concomitant]
  5. HYZAAR [Concomitant]
     Dosage: 50 MG LOSARTAN AND 12.5 MG HYDROCHLOROTHIAZIDE
  6. FUROSEMIDE [Concomitant]

REACTIONS (7)
  - FATIGUE [None]
  - DRY SKIN [None]
  - SKIN FRAGILITY [None]
  - BURNING SENSATION [None]
  - ANAEMIA [None]
  - ASTHENIA [None]
  - PRURITUS [None]
